FAERS Safety Report 9096359 (Version 2)
Quarter: 2013Q1

REPORT INFORMATION
  Report Type: Spontaneous
  Country: US (occurrence: US)
  Receive Date: 20130207
  Receipt Date: 20130308
  Transmission Date: 20140127
  Serious: No
  Sender: FDA-Public Use
  Company Number: US-009507513-1302USA002035

PATIENT
  Sex: Female

DRUGS (4)
  1. RIBAVIRIN [Suspect]
     Indication: HEPATITIS C
     Dosage: 1200 MG, 1 IN 1 DAY
     Route: 065
     Dates: start: 20120912
  2. RIBAVIRIN [Suspect]
     Dosage: UNK
     Route: 065
     Dates: start: 201301
  3. BOCEPREVIR [Suspect]
     Indication: HEPATITIS C
     Dosage: UNK
     Route: 065
     Dates: start: 20121017
  4. PEGINTERFERON ALFA-2A [Suspect]
     Indication: HEPATITIS C
     Dosage: 180 MICROGRAM, QW
     Route: 058
     Dates: start: 20120912

REACTIONS (3)
  - Insomnia [Unknown]
  - Anaemia [Unknown]
  - Fatigue [Unknown]
